FAERS Safety Report 6373775-2 (Version None)
Quarter: 2009Q3

REPORT INFORMATION
  Report Type: 
  Country: None (occurrence: None)
  Receive Date: 20090924
  Receipt Date: 20090709
  Transmission Date: 20100115
  Serious: Yes (Hospitalization, Other)
  Sender: FDA-Public Use
  Company Number: US-ASTRAZENECA-2009UW13481

PATIENT
  Age: 34 Year
  Sex: Female
  Weight: 54.4 kg

DRUGS (5)
  1. SEROQUEL [Suspect]
     Indication: POST-TRAUMATIC STRESS DISORDER
     Dosage: UP TO 400 MG
     Route: 048
     Dates: start: 19980101, end: 20070101
  2. SEROQUEL [Suspect]
     Indication: ATTENTION DEFICIT/HYPERACTIVITY DISORDER
     Dosage: UP TO 400 MG
     Route: 048
     Dates: start: 19980101, end: 20070101
  3. SEROQUEL [Suspect]
     Indication: BIPOLAR DISORDER
     Dosage: UP TO 400 MG
     Route: 048
     Dates: start: 19980101, end: 20070101
  4. SEROQUEL [Suspect]
     Indication: DEPRESSION
     Dosage: UP TO 400 MG
     Route: 048
     Dates: start: 19980101, end: 20070101
  5. RISPERDAL [Concomitant]

REACTIONS (4)
  - DIABETIC COMA [None]
  - PANCREATITIS [None]
  - TARDIVE DYSKINESIA [None]
  - TYPE 2 DIABETES MELLITUS [None]
